FAERS Safety Report 15905844 (Version 1)
Quarter: 2019Q1

REPORT INFORMATION
  Report Type: Spontaneous
  Country: AU (occurrence: AU)
  Receive Date: 20190204
  Receipt Date: 20190204
  Transmission Date: 20190417
  Serious: Yes (Other)
  Sender: FDA-Public Use
  Company Number: AU-JNJFOC-20190130958

PATIENT
  Age: 78 Year
  Sex: Female

DRUGS (1)
  1. INVEGA SUSTENNA [Suspect]
     Active Substance: PALIPERIDONE PALMITATE
     Indication: PRODUCT USED FOR UNKNOWN INDICATION
     Route: 030

REACTIONS (8)
  - Depression suicidal [Unknown]
  - Disturbance in attention [Unknown]
  - Affect lability [Unknown]
  - Breast swelling [Unknown]
  - Mood swings [Unknown]
  - Agitation [Unknown]
  - Restless legs syndrome [Unknown]
  - Insomnia [Unknown]
